FAERS Safety Report 22879471 (Version 3)
Quarter: 2023Q4

REPORT INFORMATION
  Report Type: Report from Study
  Country: IE (occurrence: IE)
  Receive Date: 20230829
  Receipt Date: 20231107
  Transmission Date: 20240110
  Serious: Yes (Other)
  Sender: FDA-Public Use
  Company Number: IE-JNJFOC-20230435648

PATIENT
  Age: 83 Year
  Sex: Male

DRUGS (11)
  1. ABIRATERONE [Suspect]
     Active Substance: ABIRATERONE
     Indication: Prostate cancer metastatic
     Dosage: 1000 MILLIGRAM, QD
     Route: 048
     Dates: start: 20220128
  2. SERETIDE [Concomitant]
     Active Substance: FLUTICASONE PROPIONATE\SALMETEROL XINAFOATE
     Indication: Product used for unknown indication
     Dosage: 250 MICROGRAM, BID
     Route: 065
  3. LEVOTHYROXINE [Concomitant]
     Active Substance: LEVOTHYROXINE
     Indication: Product used for unknown indication
     Dosage: 75 MILLIGRAM, QD
     Route: 065
  4. Decapeptyl [Concomitant]
     Indication: Product used for unknown indication
     Dosage: 11.25 MILLILITER, Q3MONTHS
     Route: 065
  5. NEUROSTIL [Concomitant]
     Indication: Product used for unknown indication
     Dosage: 100 MILLIGRAM, TID (THREE TIMES A DAY)
     Route: 065
  6. ACETAMINOPHEN [Concomitant]
     Active Substance: ACETAMINOPHEN
     Indication: Product used for unknown indication
     Dosage: 1 GRAM, BID
     Route: 065
  7. PRIMROSE OIL [Concomitant]
     Indication: Product used for unknown indication
     Dosage: 5200 MILLIGRAM, QD
     Route: 065
  8. IRON [Concomitant]
     Active Substance: IRON
     Indication: Product used for unknown indication
     Dosage: 305 MILLIGRAM, QD
     Route: 065
  9. GABAPENTIN [Concomitant]
     Active Substance: GABAPENTIN
     Indication: Product used for unknown indication
     Dosage: 100 MILLIGRAM, TID (THREE TIMES A DAY)
     Route: 065
  10. PREDNISOLONE [Concomitant]
     Active Substance: PREDNISOLONE
     Indication: Product used for unknown indication
     Dosage: 10 MILLIGRAM, 1 CYCLICAL
     Route: 065
  11. FUROSEMIDE [Concomitant]
     Active Substance: FUROSEMIDE
     Dosage: 20 MILLIGRAM, 0.33 WEEK
     Route: 065

REACTIONS (9)
  - Cataract [Unknown]
  - Hip fracture [Recovered/Resolved]
  - COVID-19 [Unknown]
  - Back pain [Unknown]
  - Back injury [Not Recovered/Not Resolved]
  - Vitamin D deficiency [Unknown]
  - Hot flush [Recovering/Resolving]
  - Stent placement [Unknown]
  - Joint swelling [Not Recovered/Not Resolved]

NARRATIVE: CASE EVENT DATE: 20230301
